FAERS Safety Report 7102012-6 (Version None)
Quarter: 2010Q4

REPORT INFORMATION
  Report Type: 
  Country: None (occurrence: None)
  Receive Date: 20101115
  Receipt Date: 20101102
  Transmission Date: 20110411
  Serious: Yes (Hospitalization, Other)
  Sender: FDA-Public Use
  Company Number: US-ROCHE-718657

PATIENT
  Sex: Male
  Weight: 45.4 kg

DRUGS (1)
  1. ACCUTANE [Suspect]
     Indication: ACNE
     Route: 065
     Dates: start: 20010801, end: 20020101

REACTIONS (15)
  - ANAL ABSCESS [None]
  - ANAL FISTULA [None]
  - BACK PAIN [None]
  - COAGULOPATHY [None]
  - CROHN'S DISEASE [None]
  - DIZZINESS [None]
  - GASTROINTESTINAL INJURY [None]
  - HAEMORRHAGIC ANAEMIA [None]
  - HEADACHE [None]
  - INFLAMMATORY BOWEL DISEASE [None]
  - INTESTINAL HAEMORRHAGE [None]
  - INTESTINAL OBSTRUCTION [None]
  - LARGE INTESTINE PERFORATION [None]
  - SOMNOLENCE [None]
  - VISION BLURRED [None]
